FAERS Safety Report 23793272 (Version 3)
Quarter: 2024Q2

REPORT INFORMATION
  Report Type: Spontaneous
  Country: FR (occurrence: FR)
  Receive Date: 20240429
  Receipt Date: 20240531
  Transmission Date: 20240716
  Serious: Yes (Hospitalization)
  Sender: FDA-Public Use
  Company Number: None

PATIENT
  Age: 71 Year
  Sex: Male

DRUGS (13)
  1. TREMFYA [Suspect]
     Active Substance: GUSELKUMAB
     Indication: Psoriasis
     Route: 058
     Dates: start: 20231130
  2. TREMFYA [Suspect]
     Active Substance: GUSELKUMAB
  3. TREMFYA [Suspect]
     Active Substance: GUSELKUMAB
  4. RAMIPRIL [Suspect]
     Active Substance: RAMIPRIL
     Indication: Hypertension
     Route: 048
     Dates: start: 2018
  5. TAHOR [Concomitant]
     Active Substance: ATORVASTATIN CALCIUM
  6. DUPIXENT [Concomitant]
     Active Substance: DUPILUMAB
  7. ALLOPURINOL [Concomitant]
     Active Substance: ALLOPURINOL
  8. CARVEDILOL [Concomitant]
     Active Substance: CARVEDILOL
  9. KARDEGIC [Concomitant]
     Active Substance: ASPIRIN DL-LYSINE
  10. LANSOPRAZOLE [Concomitant]
     Active Substance: LANSOPRAZOLE
  11. METHOTREXATE [Concomitant]
     Active Substance: METHOTREXATE
  12. COSENTYX [Concomitant]
     Active Substance: SECUKINUMAB
     Dates: start: 202311
  13. DIPROSONE [BETAMETHASONE SODIUM PHOSPHATE] [Concomitant]
     Dates: start: 202311

REACTIONS (2)
  - Diarrhoea [Recovered/Resolved]
  - Chronic kidney disease [Recovered/Resolved]

NARRATIVE: CASE EVENT DATE: 20240301
